FAERS Safety Report 25051701 (Version 1)
Quarter: 2025Q1

REPORT INFORMATION
  Report Type: Spontaneous
  Country: FI (occurrence: FI)
  Receive Date: 20250307
  Receipt Date: 20250307
  Transmission Date: 20250408
  Serious: Yes (Disabling)
  Sender: BAUSCH AND LOMB
  Company Number: FI-BAUSCH-BL-2025-003076

PATIENT
  Age: 28 Year
  Sex: Female

DRUGS (3)
  1. LOCOID [Suspect]
     Active Substance: HYDROCORTISONE BUTYRATE
     Indication: Dermatitis atopic
     Route: 003
     Dates: start: 2019
  2. LOCOID [Suspect]
     Active Substance: HYDROCORTISONE BUTYRATE
     Route: 003
     Dates: start: 2021, end: 202412
  3. BETAMETHASONE VALERATE [Suspect]
     Active Substance: BETAMETHASONE VALERATE
     Indication: Dermatitis atopic
     Route: 003
     Dates: end: 202412

REACTIONS (9)
  - Drug dependence [Recovering/Resolving]
  - Insomnia [Recovering/Resolving]
  - Temperature regulation disorder [Recovering/Resolving]
  - Alopecia [Recovering/Resolving]
  - Dermatitis [Recovering/Resolving]
  - Skin warm [Recovering/Resolving]
  - Adverse drug reaction [Recovering/Resolving]
  - Skin burning sensation [Recovering/Resolving]
  - Pruritus [Recovering/Resolving]
